FAERS Safety Report 9600404 (Version 3)
Quarter: 2014Q1

REPORT INFORMATION
  Report Type: Spontaneous
  Country: US (occurrence: US)
  Receive Date: 20131004
  Receipt Date: 20140306
  Transmission Date: 20141002
  Serious: Yes (Hospitalization)
  Sender: FDA-Public Use
  Company Number: US-AMGEN-USASP2013034784

PATIENT
  Age: 58 Year
  Sex: Female
  Weight: 105.22 kg

DRUGS (24)
  1. ENBREL [Suspect]
     Indication: RHEUMATOID ARTHRITIS
     Dosage: 50 MG, ONCE WEEKLY
     Route: 058
     Dates: start: 20120501, end: 20130219
  2. ARAVA [Suspect]
     Indication: PRODUCT USED FOR UNKNOWN INDICATION
     Dosage: UNK
     Route: 065
  3. BACTROBAN                          /00753901/ [Concomitant]
     Dosage: 2% OINTMENT, 1 NASAL TWICE DAILY
     Route: 045
  4. NEXIUM                             /01479302/ [Concomitant]
     Dosage: 40 MG, QD
     Route: 048
  5. DICLOFENAC SODIUM [Concomitant]
     Dosage: 75 MG, BID
     Route: 048
     Dates: start: 20131104
  6. PATANOL [Concomitant]
     Dosage: 1 OPTHALMIC AS NEEDED
     Route: 047
  7. HIZENTRA [Concomitant]
     Dosage: 20 %, QWK, 2GM/10ML SOLUTION
     Route: 058
  8. SERTRALINE HYDROCHLORIDE [Concomitant]
     Dosage: 50MG TABLET 1.5 ORAL DAILY
     Route: 048
  9. LEVOCETIRIZINE DIHYDROCHLORIDE [Concomitant]
     Dosage: 5 MG, QD
     Route: 048
  10. DIAZEPAM [Concomitant]
     Dosage: 2 MG TABLET 0.5 ORAL AT BEDTIME)
     Route: 048
  11. ADVAIR [Concomitant]
     Dosage: 250-50MCG/DOSE AERO POW BR ACT 1 PUFF INHALATION DAILY
  12. ZYRTEC ALLERGY [Concomitant]
     Dosage: 10 MG, QD
     Route: 048
  13. ALIGN [Concomitant]
     Dosage: 4 MG, BID
     Route: 048
  14. VITAMIN D                          /00107901/ [Concomitant]
     Dosage: 1000 UNIT, QD
     Route: 048
  15. VITAMIN E                          /00110501/ [Concomitant]
     Dosage: 400 UNIT, QD
     Route: 048
  16. VITAMIN C                          /00008001/ [Concomitant]
     Dosage: 1000 MG, QD
     Route: 048
  17. CALCIUM + VIT D [Concomitant]
     Dosage: 600-200 MG-UNIT
     Route: 048
  18. MUCINEX [Concomitant]
     Dosage: 600 MG TABLET ER 12HR 2 ORAL DAILY
     Route: 048
  19. OMNARIS [Concomitant]
     Dosage: 50 MCG/ACT SUSPENSION 2 SPRAYS EACH NOSTRIL NASAL TWICE DAILY
     Route: 045
  20. LEVOTHYROXINE SODIUM [Concomitant]
     Dosage: 25 MUG, QD
     Route: 048
  21. SUDAFED                            /00076302/ [Concomitant]
     Dosage: 120 MG,ER 12HR, 1 ORAL AT BEDTIME
     Route: 048
  22. PATANASE [Concomitant]
     Dosage: 0.6 %, QD
     Route: 045
  23. TRAMADOL AND ACETAMINOPHEN [Concomitant]
     Dosage: 37.5 - 325 MG 1-2 TABLET FOUR TIMES DAILY, AS NEEDED.
     Dates: start: 20140116
  24. FLUTICASONE FUROATE [Concomitant]
     Dosage: 27.5 MUG, BID,27.5 MCG/SPRAY SUSPENSION,2 EACH NOSTRIL
     Route: 045

REACTIONS (35)
  - Lymphadenitis bacterial [Unknown]
  - Cellulitis [Recovered/Resolved]
  - Cellulitis streptococcal [Recovered/Resolved]
  - Pain [Recovered/Resolved]
  - Arthralgia [Unknown]
  - Fatigue [Unknown]
  - Sleep disorder [Unknown]
  - Arthropathy [Unknown]
  - Neuropathy peripheral [Recovering/Resolving]
  - Rash [Recovered/Resolved]
  - Alopecia [Unknown]
  - Dry eye [Unknown]
  - Tinnitus [Unknown]
  - Dry mouth [Unknown]
  - Mouth ulceration [Unknown]
  - Cough [Recovered/Resolved]
  - Nausea [Recovered/Resolved]
  - Vomiting [Recovered/Resolved]
  - Dyspepsia [Recovered/Resolved]
  - Diarrhoea [Unknown]
  - Myalgia [Unknown]
  - Muscular weakness [Unknown]
  - Headache [Recovered/Resolved]
  - Polydipsia [Unknown]
  - Polyuria [Unknown]
  - Pyrexia [Recovered/Resolved]
  - Lymph node pain [Unknown]
  - Joint stiffness [Unknown]
  - Joint swelling [Unknown]
  - Hypoaesthesia [Unknown]
  - Osteoarthritis [Unknown]
  - Blood glucose abnormal [Unknown]
  - Chest pain [Recovered/Resolved]
  - Paraesthesia [Unknown]
  - Lymphadenopathy [Unknown]
